FAERS Safety Report 9424616 (Version 1)
Quarter: 2013Q3

REPORT INFORMATION
  Report Type: Spontaneous
  Country: US (occurrence: None)
  Receive Date: 20130726
  Receipt Date: 20130726
  Transmission Date: 20140515
  Serious: Yes (Other)
  Sender: FDA-Public Use
  Company Number: None

PATIENT
  Age: 39 Year
  Sex: Female
  Weight: 56.7 kg

DRUGS (3)
  1. CELEBREX [Suspect]
  2. CELEBREX [Concomitant]
  3. BEXTRA [Concomitant]

REACTIONS (15)
  - Alopecia [None]
  - Weight increased [None]
  - Pruritus [None]
  - Muscular weakness [None]
  - Fatigue [None]
  - Swelling [None]
  - Rash [None]
  - Heart rate increased [None]
  - Nightmare [None]
  - Systemic lupus erythematosus [None]
  - Dermatomyositis [None]
  - Lymphopenia [None]
  - Liver disorder [None]
  - Cardiac disorder [None]
  - Renal disorder [None]
